FAERS Safety Report 6022481-2 (Version None)
Quarter: 2008Q4

REPORT INFORMATION
  Report Type: 
  Country: None (occurrence: None)
  Receive Date: 20081230
  Receipt Date: 20081217
  Transmission Date: 20090506
  Serious: Yes (Other)
  Sender: FDA-Public Use
  Company Number: PHHY2008CN32163

PATIENT

DRUGS (2)
  1. MIACALCIN [Suspect]
     Indication: OSTEOPOROSIS
     Dosage: 1 DF, ONCE/SINGLE
  2. CELECOXIB [Concomitant]
     Dosage: UNK

REACTIONS (1)
  - TACHYCARDIA [None]
